FAERS Safety Report 9183536 (Version 1)
Quarter: 2013Q1

REPORT INFORMATION
  Report Type: Spontaneous
  Country: HU (occurrence: HU)
  Receive Date: 20130322
  Receipt Date: 20130322
  Transmission Date: 20140127
  Serious: Yes (Death, Hospitalization, Other)
  Sender: FDA-Public Use
  Company Number: PHHY2013HU027922

PATIENT
  Age: 68 Year
  Sex: Male

DRUGS (6)
  1. ONBREZ [Suspect]
     Indication: CHRONIC OBSTRUCTIVE PULMONARY DISEASE
     Dosage: 150 UG, QD
     Dates: start: 20120618, end: 20120718
  2. ONBREZ [Suspect]
     Dosage: 150 UG, QD
     Dates: start: 20121128
  3. SPIRIVA [Concomitant]
     Dosage: 18 UG, QD
  4. ANTIBIOTICS [Concomitant]
  5. THEOSPIREX                              /AUT/ [Concomitant]
  6. CONTROLOC [Concomitant]

REACTIONS (19)
  - Cardio-respiratory arrest [Fatal]
  - Lung neoplasm malignant [Fatal]
  - Metastases to central nervous system [Fatal]
  - Hemianopia homonymous [Fatal]
  - Facial paresis [Fatal]
  - Epilepsy [Fatal]
  - Sepsis [Fatal]
  - Pyrexia [Fatal]
  - Asthenia [Fatal]
  - General physical health deterioration [Fatal]
  - Dry skin [Fatal]
  - Skin discolouration [Fatal]
  - Tongue coated [Fatal]
  - C-reactive protein increased [Fatal]
  - Leukocytosis [Fatal]
  - Adrenal adenoma [Unknown]
  - Prostatitis [Recovered/Resolved]
  - Anaemia [Unknown]
  - Acute sinusitis [Unknown]
